FAERS Safety Report 4292713-X (Version None)
Quarter: 2004Q1

REPORT INFORMATION
  Report Type: 
  Country: None (occurrence: None)
  Receive Date: 20040126
  Receipt Date: 20031028
  Transmission Date: 20041129
  Serious: No
  Sender: FDA-Public Use
  Company Number: USA030946362

PATIENT
  Age: 72 Year
  Sex: Female

DRUGS (9)
  1. FORTEO [Suspect]
     Indication: OSTEOPOROSIS
     Dates: start: 20030501
  2. PREVACID [Concomitant]
  3. DILANTIN [Concomitant]
  4. NEURONTIN [Concomitant]
  5. THYROID TAB [Concomitant]
  6. ZOCOR [Concomitant]
  7. ACCUPRIL [Concomitant]
  8. MEPROBAMATE [Concomitant]
  9. ASPIRIN [Concomitant]

REACTIONS (3)
  - ANAEMIA [None]
  - ANOSMIA [None]
  - PAIN [None]
